FAERS Safety Report 6603205-4 (Version None)
Quarter: 2010Q1

REPORT INFORMATION
  Report Type: 
  Country: None (occurrence: None)
  Receive Date: 20100226
  Receipt Date: 20090522
  Transmission Date: 20100710
  Serious: No
  Sender: FDA-Public Use
  Company Number: US-TYCO HEALTHCARE/MALLINCKRODT-T200901096

PATIENT
  Sex: Male

DRUGS (1)
  1. GALLIUM CITRATE GA 67 [Suspect]
     Indication: SCAN GALLIUM
     Dosage: 5 MCI, SINGLE
     Route: 042
     Dates: start: 20090520, end: 20090520

REACTIONS (2)
  - PETECHIAE [None]
  - SKIN DISCOLOURATION [None]
